FAERS Safety Report 6252150-5 (Version None)
Quarter: 2009Q2

REPORT INFORMATION
  Report Type: 
  Country: None (occurrence: None)
  Receive Date: 20090630
  Receipt Date: 20051129
  Transmission Date: 20091009
  Serious: Yes (Hospitalization)
  Sender: FDA-Public Use
  Company Number: US-ROCHE-639167

PATIENT
  Sex: Female

DRUGS (19)
  1. ENFUVIRTIDE [Suspect]
     Route: 065
     Dates: start: 20040922, end: 20071029
  2. KALETRA [Concomitant]
     Dates: start: 20001110, end: 20060117
  3. VIREAD [Concomitant]
     Dates: start: 20010529, end: 20041018
  4. VIREAD [Concomitant]
     Dates: start: 20041018, end: 20051130
  5. EPZICOM [Concomitant]
     Dates: start: 20040922, end: 20041020
  6. INTENSAIN [Concomitant]
     Dates: start: 20040922, end: 20051019
  7. EPIVIR [Concomitant]
     Dates: start: 20041020, end: 20051130
  8. ZIAGEN [Concomitant]
     Dates: start: 20041020, end: 20051201
  9. BACTRIM DS [Concomitant]
     Dates: start: 20010112, end: 20051201
  10. ZITHROMAX [Concomitant]
     Dates: start: 20041108, end: 20041101
  11. KEFLEX [Concomitant]
     Dates: start: 20041222, end: 20041229
  12. CIFLOX [Concomitant]
     Dates: start: 20050426, end: 20050427
  13. CIFLOX [Concomitant]
     Dates: start: 20050608, end: 20050616
  14. CIFLOX [Concomitant]
     Dates: start: 20051019, end: 20051024
  15. FLAGYL [Concomitant]
     Dates: start: 20050608, end: 20050608
  16. FLAGYL [Concomitant]
     Dates: start: 20051019, end: 20051024
  17. TEQUIN [Concomitant]
     Dates: start: 20050808, end: 20050813
  18. GATIFLOXACIN [Concomitant]
     Dates: start: 20051130, end: 20051211
  19. VANCOMYCIN [Concomitant]
     Dates: start: 20051101, end: 20051101

REACTIONS (17)
  - ABDOMINAL SYMPTOM [None]
  - ADRENAL INSUFFICIENCY [None]
  - CHEST PAIN [None]
  - CHRONIC OBSTRUCTIVE PULMONARY DISEASE [None]
  - CORONARY ARTERY DISEASE [None]
  - COUGH [None]
  - DECUBITUS ULCER [None]
  - DYSPNOEA [None]
  - GASTROOESOPHAGEAL REFLUX DISEASE [None]
  - HEADACHE [None]
  - HIV INFECTION [None]
  - HYPERLIPIDAEMIA [None]
  - HYPERTENSION [None]
  - HYPOTENSION [None]
  - LIPODYSTROPHY ACQUIRED [None]
  - NEUROTOXICITY [None]
  - RENAL FAILURE [None]
